FAERS Safety Report 17517793 (Version 1)
Quarter: 2020Q1

REPORT INFORMATION
  Report Type: Spontaneous
  Country: US (occurrence: US)
  Receive Date: 20200309
  Receipt Date: 20200309
  Transmission Date: 20200409
  Serious: No
  Sender: FDA-Public Use
  Company Number: NVSC2020US065639

PATIENT
  Sex: Female

DRUGS (1)
  1. FEMARA [Suspect]
     Active Substance: LETROZOLE
     Indication: PRODUCT USED FOR UNKNOWN INDICATION
     Route: 065

REACTIONS (8)
  - Arthropathy [Recovering/Resolving]
  - Speech sound disorder [Recovering/Resolving]
  - Memory impairment [Recovering/Resolving]
  - Disorientation [Recovering/Resolving]
  - Anger [Recovering/Resolving]
  - Cognitive disorder [Recovering/Resolving]
  - Emotional disorder [Recovering/Resolving]
  - Muscular weakness [Recovering/Resolving]
